FAERS Safety Report 6981178 (Version 7)
Quarter: 2018Q4

REPORT INFORMATION
  Report Type: Spontaneous
  Country: JP (occurrence: JP)
  Receive Date: 20090429
  Receipt Date: 20181210
  Transmission Date: 20190205
  Serious: Yes (Hospitalization, Other)
  Sender: FDA-Public Use
  Company Number: PHHY2009JP15388

PATIENT
  Age: 59 Year
  Sex: Male

DRUGS (3)
  1. CO-DIOVAN [Suspect]
     Active Substance: HYDROCHLOROTHIAZIDE\VALSARTAN
     Indication: HYPERTENSION
     Dosage: 1 DF, QD
     Route: 048
     Dates: start: 20090318
  2. ARTIST [Concomitant]
     Active Substance: CARVEDILOL
     Indication: TACHYCARDIA
     Dosage: 2.5 MG
     Route: 048
     Dates: start: 20071009
  3. EPADEL [Concomitant]
     Active Substance: ICOSAPENT
     Indication: CAROTID ARTERIOSCLEROSIS
     Dosage: 900 MG
     Route: 048
     Dates: start: 20090219

REACTIONS (8)
  - Altered state of consciousness [Recovered/Resolved]
  - Dizziness [Unknown]
  - Demyelination [Unknown]
  - Hyponatraemia [Recovered/Resolved]
  - Vomiting [Unknown]
  - Wound haemorrhage [Unknown]
  - Wound [Unknown]
  - Fall [Unknown]

NARRATIVE: CASE EVENT DATE: 20090409
